FAERS Safety Report 22625874 (Version 3)
Quarter: 2025Q1

REPORT INFORMATION
  Report Type: Spontaneous
  Country: CA (occurrence: CA)
  Receive Date: 20230621
  Receipt Date: 20250307
  Transmission Date: 20250408
  Serious: Yes (Death, Life-Threatening, Other)
  Sender: ABBVIE
  Company Number: CA-MLMSERVICE-20230608-4324991-1

PATIENT
  Age: 25 Year
  Sex: Male

DRUGS (1)
  1. CITALOPRAM [Suspect]
     Active Substance: CITALOPRAM
     Indication: Anxiety
     Route: 065

REACTIONS (2)
  - Suicidal ideation [Fatal]
  - Completed suicide [Fatal]
